FAERS Safety Report 23321547 (Version 1)
Quarter: 2023Q4

REPORT INFORMATION
  Report Type: Report from Study
  Country: US (occurrence: None)
  Receive Date: 20231220
  Receipt Date: 20231220
  Transmission Date: 20240110
  Serious: Yes (Hospitalization, Other)
  Sender: FDA-Public Use
  Company Number: 2023A283418

PATIENT
  Sex: Female

DRUGS (1)
  1. TAGRISSO [Suspect]
     Active Substance: OSIMERTINIB
     Route: 048

REACTIONS (8)
  - Fall [Unknown]
  - Balance disorder [Unknown]
  - Head injury [Unknown]
  - Vertigo [Unknown]
  - Anaemia [Unknown]
  - Nervous system disorder [Unknown]
  - Delusion [Unknown]
  - Paranoia [Unknown]
